FAERS Safety Report 9895783 (Version 1)
Quarter: 2014Q1

REPORT INFORMATION
  Report Type: Spontaneous
  Country: US (occurrence: US)
  Receive Date: 20140213
  Receipt Date: 20140213
  Transmission Date: 20141002
  Serious: No
  Sender: FDA-Public Use
  Company Number: US-BRISTOL-MYERS SQUIBB COMPANY-19475029

PATIENT
  Age: 68 Year
  Sex: Female
  Weight: 63.49 kg

DRUGS (10)
  1. ORENCIA [Suspect]
     Dosage: LAST 2 INFUSIONS SHE HAS HAD, 24AUG2013 AND 24SEP2013
     Route: 042
  2. PREDNISONE [Concomitant]
  3. MELOXICAM [Concomitant]
  4. VITAMIN B12 [Concomitant]
  5. FISH OIL [Concomitant]
  6. LODINE [Concomitant]
  7. CALCIUM [Concomitant]
  8. MULTIVITAMIN [Concomitant]
  9. NEXIUM [Concomitant]
  10. BIOTIN [Concomitant]

REACTIONS (2)
  - Tongue ulceration [Unknown]
  - Sinus disorder [Recovering/Resolving]
